FAERS Safety Report 4337211-X (Version None)
Quarter: 2004Q2

REPORT INFORMATION
  Report Type: 
  Country: None (occurrence: None)
  Receive Date: 20040412
  Receipt Date: 20040412
  Transmission Date: 20050107
  Serious: Yes (Other)
  Sender: FDA-Public Use
  Company Number: None

PATIENT
  Age: 82 Year
  Sex: Male
  Weight: 73.5 kg

DRUGS (2)
  1. GATIFLOXACIN [Suspect]
     Indication: CELLULITIS
     Dosage: 200 MG , DAILY, ORAL
     Route: 048
     Dates: start: 20031106, end: 20031124
  2. GATIFLOXACIN [Concomitant]

REACTIONS (2)
  - HYPERGLYCAEMIA [None]
  - LETHARGY [None]
